FAERS Safety Report 4694332-X (Version None)
Quarter: 2005Q2

REPORT INFORMATION
  Report Type: 
  Country: None (occurrence: None)
  Receive Date: 20050614
  Receipt Date: 20050301
  Transmission Date: 20051028
  Serious: No
  Sender: FDA-Public Use
  Company Number: USA050392121

PATIENT
  Age: 72 Year
  Sex: Male

DRUGS (7)
  1. CIALIS [Suspect]
     Dosage: 40 MG DAY
     Dates: start: 20050201
  2. LOTREL [Concomitant]
  3. LIPITOR [Concomitant]
  4. GLUCOTROL [Concomitant]
  5. GLUCOPHAGE [Concomitant]
  6. NEXIUM [Concomitant]
  7. ASPIRIN [Concomitant]

REACTIONS (2)
  - PRESCRIBED OVERDOSE [None]
  - THERAPEUTIC RESPONSE DECREASED [None]
